FAERS Safety Report 13372317 (Version 1)
Quarter: 2017Q1

REPORT INFORMATION
  Report Type: Spontaneous
  Country: US (occurrence: US)
  Receive Date: 20170324
  Receipt Date: 20170324
  Transmission Date: 20170429
  Serious: No
  Sender: FDA-Public Use
  Company Number: None

PATIENT
  Sex: Female

DRUGS (1)
  1. FLUSH 0.9% SODIUM CHLORIDE [Suspect]
     Active Substance: SODIUM CHLORIDE
     Indication: INFUSION
     Dosage: FREQUENCY - BEFORE + AFTER INFUSIONS OF THERAPY?ROUTE - PERIPHERAL IV
     Route: 042
     Dates: start: 2016

REACTIONS (2)
  - Syringe issue [None]
  - Device difficult to use [None]
